FAERS Safety Report 4887163-9 (Version None)
Quarter: 2005Q4

REPORT INFORMATION
  Report Type: 
  Country: None (occurrence: None)
  Receive Date: 20051220
  Receipt Date: 20041209
  Transmission Date: 20060501
  Serious: Yes (Other)
  Sender: FDA-Public Use
  Company Number: HQWYE966514DEC04

PATIENT
  Sex: Female
  Weight: 59.02 kg

DRUGS (3)
  1. EFFEXOR XR [Suspect]
     Indication: GENERALISED ANXIETY DISORDER
     Dosage: 37.5 MG 1X PER 1 DAY, ORAL
     Route: 048
  2. EFFEXOR XR [Suspect]
     Indication: HOT FLUSH
     Dosage: 37.5 MG 1X PER 1 DAY, ORAL
     Route: 048
  3. EFFEXOR XR [Suspect]
     Indication: NIGHTMARE
     Dosage: 37.5 MG 1X PER 1 DAY, ORAL
     Route: 048

REACTIONS (8)
  - DEPRESSION [None]
  - DIZZINESS [None]
  - DRUG WITHDRAWAL SYNDROME [None]
  - FEELING ABNORMAL [None]
  - LETHARGY [None]
  - NIGHTMARE [None]
  - TREMOR [None]
  - VERTIGO [None]
